FAERS Safety Report 23379743 (Version 1)
Quarter: 2024Q1

REPORT INFORMATION
  Report Type: Spontaneous
  Country: NL (occurrence: NL)
  Receive Date: 20240108
  Receipt Date: 20240108
  Transmission Date: 20240409
  Serious: Yes (Life-Threatening, Hospitalization)
  Sender: FDA-Public Use
  Company Number: None

PATIENT
  Age: 22 Year
  Sex: Male
  Weight: 100 kg

DRUGS (1)
  1. CONCERTA [Suspect]
     Active Substance: METHYLPHENIDATE HYDROCHLORIDE
     Indication: Attention deficit hyperactivity disorder
     Dosage: 1X PER DAG 1 STUK
     Route: 048
     Dates: start: 20230715, end: 20231001

REACTIONS (4)
  - Anxiety [Recovered/Resolved]
  - Restlessness [Recovered/Resolved]
  - Product substitution issue [Unknown]
  - Panic reaction [Recovered/Resolved]
